FAERS Safety Report 8541356-8 (Version None)
Quarter: 2012Q3

REPORT INFORMATION
  Report Type: 
  Country: None (occurrence: None)
  Receive Date: 20120726
  Receipt Date: 20110921
  Transmission Date: 20120928
  Serious: No
  Sender: FDA-Public Use
  Company Number: US-ASTRAZENECA-2011SE56817

PATIENT
  Sex: Female

DRUGS (3)
  1. DOPAMAX [Concomitant]
  2. SEROQUEL [Suspect]
     Indication: SLEEP DISORDER
     Route: 048
  3. DEPAKOTE [Concomitant]

REACTIONS (5)
  - OFF LABEL USE [None]
  - DRUG DOSE OMISSION [None]
  - FEELING JITTERY [None]
  - INSOMNIA [None]
  - NAUSEA [None]
